FAERS Safety Report 6827713-6 (Version None)
Quarter: 2010Q3

REPORT INFORMATION
  Report Type: 
  Country: None (occurrence: None)
  Receive Date: 20100709
  Receipt Date: 20070124
  Transmission Date: 20110219
  Serious: No
  Sender: FDA-Public Use
  Company Number: US-PFIZER INC-2007007447

PATIENT
  Sex: Female
  Weight: 50.8 kg

DRUGS (3)
  1. CHANTIX [Suspect]
     Indication: SMOKING CESSATION THERAPY
     Dates: start: 20070114
  2. NORVASC [Concomitant]
  3. ONE-A-DAY [Concomitant]

REACTIONS (2)
  - BURNING SENSATION [None]
  - NASOPHARYNGITIS [None]
